FAERS Safety Report 14155947 (Version 1)
Quarter: 2017Q4

REPORT INFORMATION
  Report Type: Other
  Country: None (occurrence: US)
  Receive Date: 20171103
  Receipt Date: 20171103
  Transmission Date: 20180321
  Serious: Yes (Other)
  Sender: FDA-Public Use
  Company Number: US-BIO-PHARM, INC -2033172

PATIENT
  Age: 22 Year
  Sex: Male

DRUGS (1)
  1. RISPERIDONE. [Suspect]
     Active Substance: RISPERIDONE

REACTIONS (3)
  - Eosinophilic cellulitis [Unknown]
  - Pulmonary embolism [None]
  - Cardiac disorder [None]
